FAERS Safety Report 18781384 (Version 1)
Quarter: 2021Q1

REPORT INFORMATION
  Report Type: Spontaneous
  Country: US (occurrence: US)
  Receive Date: 20210125
  Receipt Date: 20210125
  Transmission Date: 20210419
  Serious: Yes (Death)
  Sender: FDA-Public Use
  Company Number: US-ENDO PHARMACEUTICALS INC-2021-000164

PATIENT
  Age: 14 Year
  Sex: Female

DRUGS (1)
  1. DILTIAZEM HYDROCHLORIDE. [Suspect]
     Active Substance: DILTIAZEM HYDROCHLORIDE
     Indication: PRODUCT USED FOR UNKNOWN INDICATION
     Dosage: UNK UNKNOWN, UNKNOWN
     Route: 048

REACTIONS (6)
  - Bradycardia [Fatal]
  - Hypotension [Fatal]
  - Toxicity to various agents [Fatal]
  - Acute respiratory distress syndrome [Fatal]
  - Completed suicide [Fatal]
  - Seizure [Fatal]

NARRATIVE: CASE EVENT DATE: 2019
